FAERS Safety Report 7597775-X (Version None)
Quarter: 2011Q3

REPORT INFORMATION
  Report Type: 
  Country: None (occurrence: None)
  Receive Date: 20110708
  Receipt Date: 20110704
  Transmission Date: 20111222
  Serious: Yes (Other)
  Sender: FDA-Public Use
  Company Number: DE-GLAXOSMITHKLINE-D0071926A

PATIENT
  Age: 20 Year
  Sex: Male

DRUGS (1)
  1. TROBALT [Suspect]
     Indication: EPILEPSY
     Dosage: 200MG THREE TIMES PER DAY
     Route: 048

REACTIONS (1)
  - PARKINSONISM [None]
